FAERS Safety Report 7088873-8 (Version None)
Quarter: 2010Q4

REPORT INFORMATION
  Report Type: 
  Country: None (occurrence: None)
  Receive Date: 20101108
  Receipt Date: 20101027
  Transmission Date: 20110411
  Serious: Yes (Hospitalization, Other)
  Sender: FDA-Public Use
  Company Number: US-PFIZER INC-2010129295

PATIENT
  Age: 29 Year
  Sex: Female

DRUGS (1)
  1. SUNITINIB MALATE [Suspect]
     Indication: RENAL CELL CARCINOMA
     Dosage: 50 MG, ONCE DAILY (4 WEEKS ON AND 2 WEEKS OFF)

REACTIONS (7)
  - FATIGUE [None]
  - INFLAMMATION [None]
  - LETHARGY [None]
  - NAUSEA [None]
  - THROMBOCYTOPENIA [None]
  - TUMOUR NECROSIS [None]
  - VOMITING [None]
